FAERS Safety Report 17767811 (Version 3)
Quarter: 2020Q3

REPORT INFORMATION
  Report Type: Spontaneous
  Country: US (occurrence: US)
  Receive Date: 20200511
  Receipt Date: 20200817
  Transmission Date: 20201102
  Serious: No
  Sender: FDA-Public Use
  Company Number: US-PFIZER INC-2020183208

PATIENT
  Age: 68 Year
  Sex: Female
  Weight: 80.74 kg

DRUGS (1)
  1. GENOTROPIN MQ [Suspect]
     Active Substance: SOMATROPIN
     Indication: GROWTH HORMONE DEFICIENCY
     Dosage: UNK

REACTIONS (5)
  - Nausea [Unknown]
  - General physical health deterioration [Unknown]
  - Drug ineffective [Unknown]
  - Sluggishness [Unknown]
  - Asthenia [Unknown]

NARRATIVE: CASE EVENT DATE: 202004
